FAERS Safety Report 23846085 (Version 2)
Quarter: 2024Q2

REPORT INFORMATION
  Report Type: Other
  Country: US (occurrence: US)
  Receive Date: 20240512
  Receipt Date: 20240518
  Transmission Date: 20240715
  Serious: No
  Sender: FDA-Public Use
  Company Number: US-TRAVERE-2024TVT00393

PATIENT
  Age: 64 Year
  Sex: Female

DRUGS (2)
  1. FILSPARI [Suspect]
     Active Substance: SPARSENTAN
     Indication: Haematuria
     Dosage: 200MG/EVERY 14 DAYS
     Route: 048
     Dates: start: 202311
  2. FILSPARI [Suspect]
     Active Substance: SPARSENTAN
     Indication: IgA nephropathy

REACTIONS (3)
  - Headache [Unknown]
  - Inappropriate schedule of product administration [Unknown]
  - Dizziness [Unknown]
